FAERS Safety Report 12154084 (Version 1)
Quarter: 2016Q1

REPORT INFORMATION
  Report Type: Spontaneous
  Country: US (occurrence: None)
  Receive Date: 20160304
  Receipt Date: 20160304
  Transmission Date: 20160526
  Serious: Yes (Death, Life-Threatening, Disabling)
  Sender: FDA-Public Use
  Company Number: None

PATIENT
  Age: 74 Year
  Sex: Male
  Weight: 83.92 kg

DRUGS (16)
  1. ERTAPENEM MERECK [Suspect]
     Active Substance: ERTAPENEM
     Indication: LOCALISED INFECTION
     Dosage: THRU IV TUBE
     Route: 042
     Dates: start: 2015, end: 20151204
  2. ERTAPENEM MERECK [Suspect]
     Active Substance: ERTAPENEM
     Indication: SKIN ULCER
     Dosage: THRU IV TUBE
     Route: 042
     Dates: start: 2015, end: 20151204
  3. OXYCODONE [Concomitant]
     Active Substance: OXYCODONE
  4. CELEXA [Concomitant]
     Active Substance: CITALOPRAM HYDROBROMIDE
  5. AMIODARONE [Concomitant]
     Active Substance: AMIODARONE
  6. ASPIRIN. [Concomitant]
     Active Substance: ASPIRIN
  7. CHOLECALCIFEROL [Concomitant]
     Active Substance: CHOLECALCIFEROL
  8. PRILOSEC [Concomitant]
     Active Substance: OMEPRAZOLE MAGNESIUM
  9. PLAVIX [Concomitant]
     Active Substance: CLOPIDOGREL BISULFATE
  10. LATIX [Concomitant]
  11. REMERON [Concomitant]
     Active Substance: MIRTAZAPINE
  12. VITAMIN C [Concomitant]
     Active Substance: ASCORBIC ACID
  13. PRAVASTATIN [Concomitant]
     Active Substance: PRAVASTATIN\PRAVASTATIN SODIUM
  14. ERTAPENEM MERECK [Suspect]
     Active Substance: ERTAPENEM
     Indication: POST PROCEDURAL INFECTION
     Dosage: THRU IV TUBE
     Route: 042
     Dates: start: 2015, end: 20151204
  15. NOVOLOG [Concomitant]
     Active Substance: INSULIN ASPART
  16. HUMALOG [Concomitant]
     Active Substance: INSULIN LISPRO

REACTIONS (4)
  - Dyspnoea [None]
  - Anger [None]
  - Hallucination [None]
  - Fatigue [None]

NARRATIVE: CASE EVENT DATE: 2015
